FAERS Safety Report 17052843 (Version 1)
Quarter: 2019Q4

REPORT INFORMATION
  Report Type: Spontaneous
  Country: US (occurrence: US)
  Receive Date: 20191119
  Receipt Date: 20191119
  Transmission Date: 20200122
  Serious: Yes (Hospitalization)
  Sender: FDA-Public Use
  Company Number: None

PATIENT
  Sex: Female

DRUGS (9)
  1. LIDOCAINE. [Concomitant]
     Active Substance: LIDOCAINE
  2. POLYETH GLYC [Concomitant]
     Active Substance: POLYETHYLENE GLYCOLS
  3. ZARXIO [Suspect]
     Active Substance: FILGRASTIM-SNDZ
     Indication: BONE CANCER
     Dosage: ?          OTHER FREQUENCY:QD 12 OF 14 DAYS;?
     Route: 058
     Dates: start: 20181101, end: 20191115
  4. SMZ-TMP [Concomitant]
     Active Substance: SULFAMETHOXAZOLE\TRIMETHOPRIM
  5. DOK PLUS [Concomitant]
     Active Substance: DOCUSATE SODIUM\SENNOSIDES
  6. FAMOTIDINE. [Concomitant]
     Active Substance: FAMOTIDINE
  7. TRANSDERM-SC [Concomitant]
  8. MELATONIN [Concomitant]
     Active Substance: MELATONIN
  9. METHADONE [Concomitant]
     Active Substance: METHADONE HYDROCHLORIDE

REACTIONS (1)
  - Hospitalisation [None]
